FAERS Safety Report 25245243 (Version 1)
Quarter: 2025Q2

REPORT INFORMATION
  Report Type: Spontaneous
  Country: US (occurrence: None)
  Receive Date: 20250425
  Receipt Date: 20250425
  Transmission Date: 20250717
  Serious: Yes (Hospitalization)
  Sender: FDA-CTU
  Company Number: None

PATIENT
  Age: 15 Year
  Sex: Male
  Weight: 65.1 kg

DRUGS (6)
  1. HUMIRA [Suspect]
     Active Substance: ADALIMUMAB
     Indication: Colitis ulcerative
     Route: 058
     Dates: start: 20250402
  2. ONDANSETRON 4 MG TAB [Concomitant]
     Dates: start: 20250422
  3. CYPROHEPTADINE 4 MG TAB [Concomitant]
  4. OMEPRAZOLE 20 MG CAP [Concomitant]
     Dates: start: 20250414
  5. Symbicort 16014.5 INHALER [Concomitant]
     Dates: start: 20240820
  6. ALBUTEROL [Concomitant]
     Active Substance: ALBUTEROL
     Dates: start: 20240820

REACTIONS (3)
  - Haemoglobin decreased [None]
  - Haematocrit decreased [None]
  - Transfusion [None]

NARRATIVE: CASE EVENT DATE: 20250423
